FAERS Safety Report 6683348-X (Version None)
Quarter: 2010Q2

REPORT INFORMATION
  Report Type: 
  Country: None (occurrence: None)
  Receive Date: 20100415
  Receipt Date: 20100401
  Transmission Date: 20101027
  Serious: Yes (Hospitalization, Other)
  Sender: FDA-Public Use
  Company Number: PHEH2006US06975

PATIENT
  Sex: Female
  Weight: 91.2 kg

DRUGS (57)
  1. AREDIA [Suspect]
     Indication: METASTASES TO BONE
     Dosage: 90 MG, QMO
     Route: 042
     Dates: start: 19991122, end: 20020301
  2. ZOMETA [Suspect]
     Indication: METASTASES TO BONE
     Dosage: UNK
     Dates: start: 20020301, end: 20041101
  3. ADRIAMYCIN PFS [Concomitant]
     Indication: BREAST CANCER METASTATIC
     Dates: start: 19990101
  4. RADIATION THERAPY [Concomitant]
     Dosage: 3500 CGY
     Dates: start: 19990624
  5. TAMOXIFEN CITRATE [Concomitant]
     Indication: BREAST CANCER
  6. XELODA [Concomitant]
     Indication: BREAST CANCER METASTATIC
  7. ANTINEOPLASTIC AGENTS [Concomitant]
  8. ARANESP [Concomitant]
     Dosage: UNK, QW3
  9. AVALIDE [Concomitant]
     Dosage: UNK, UNK
  10. FOSAMAX [Concomitant]
     Dosage: UNK, UNK
  11. PERIDEX [Suspect]
     Dosage: UNK, UNK
     Dates: start: 20050224
  12. DECADRON [Concomitant]
  13. AROMASIN [Concomitant]
  14. AVASTIN [Concomitant]
  15. ALOXI [Concomitant]
  16. DEXAMETHASONE [Concomitant]
  17. CIMETIDINE [Concomitant]
  18. DIPHENHYDRAMINE HYDROCHLORIDE [Concomitant]
  19. TAXOL [Concomitant]
  20. HERCEPTIN [Concomitant]
  21. PERCOCET [Concomitant]
  22. KEFLEX [Concomitant]
  23. LEVAQUIN [Concomitant]
  24. AMBIEN [Concomitant]
  25. CIPROFLOXACIN [Concomitant]
  26. OXYCODONE HCL AND ACETAMINOPHEN [Concomitant]
  27. METRONIDAZOLE [Concomitant]
  28. ZOLPIDEM TARTRATE [Concomitant]
  29. CEPHALEXIN [Concomitant]
  30. PENICILLIN VK [Concomitant]
  31. ARIMIDEX [Concomitant]
  32. FEMARA [Concomitant]
  33. VINORELBINE [Concomitant]
  34. LACTULOSE [Concomitant]
  35. NAVELBINE [Concomitant]
  36. PROCHLORPERAZINE [Concomitant]
  37. BACTRIM DS [Concomitant]
  38. MARINOL [Concomitant]
  39. ACIDOPHILUS ^ZYMA^ [Concomitant]
  40. COREG [Concomitant]
  41. TOPROL-XL [Concomitant]
  42. ADVAIR DISKUS 100/50 [Concomitant]
  43. DIOVAN [Concomitant]
  44. TYLENOL-500 [Concomitant]
     Dosage: 650 MG, PRN
     Route: 048
  45. BENADRYL ^ACHE^ [Concomitant]
     Dosage: 25 MG, PRN
     Route: 048
  46. EPOGEN [Concomitant]
     Dosage: 40000 U, QW
  47. PROCRIT                            /00909301/ [Concomitant]
     Dosage: 40000 U, QW
  48. TAGAMET [Concomitant]
     Dosage: 300 MG, BID
     Route: 048
  49. COUMADIN [Concomitant]
     Dosage: 1 MG, QD
     Route: 048
  50. GEMZAR [Concomitant]
     Dosage: UNK
  51. NEURONTIN [Concomitant]
     Dosage: UNK
     Route: 048
  52. GLUTAMINE [Concomitant]
     Dosage: UNK
     Route: 048
  53. ZITHROMAX [Concomitant]
     Dosage: UNK
     Route: 048
  54. COMPAZINE [Concomitant]
     Dosage: UNK
     Route: 048
  55. ATIVAN [Concomitant]
     Dosage: 1 MG, PRN
     Route: 048
  56. ANZEMET [Concomitant]
     Dosage: 160 MG, UNK
  57. KYTRIL [Concomitant]
     Dosage: 0.820 MG, UNK

REACTIONS (84)
  - ABDOMINAL PAIN [None]
  - ABSCESS DRAINAGE [None]
  - ANAEMIA [None]
  - BACK PAIN [None]
  - BACTERIAL TEST POSITIVE [None]
  - BIOPSY BONE [None]
  - BONE DEBRIDEMENT [None]
  - BONE DENSITY DECREASED [None]
  - BONE DEVELOPMENT ABNORMAL [None]
  - BONE DISORDER [None]
  - BONE FRAGMENTATION [None]
  - BONE TRIMMING [None]
  - CHEST PAIN [None]
  - COLONOSCOPY ABNORMAL [None]
  - COMPUTERISED TOMOGRAM ABNORMAL [None]
  - CONGENITAL CYSTIC KIDNEY DISEASE [None]
  - CONSTIPATION [None]
  - COUGH [None]
  - CRANIAL NERVE DISORDER [None]
  - CYST [None]
  - DECREASED APPETITE [None]
  - DEHYDRATION [None]
  - DENTAL CARE [None]
  - DYSARTHRIA [None]
  - DYSPHAGIA [None]
  - DYSPNOEA EXERTIONAL [None]
  - DYSURIA [None]
  - EAR PAIN [None]
  - EMOTIONAL DISORDER [None]
  - ERYTHEMA [None]
  - EUSTACHIAN TUBE DYSFUNCTION [None]
  - EXCESSIVE GRANULATION TISSUE [None]
  - FATIGUE [None]
  - FOREIGN BODY [None]
  - GASTROENTERITIS [None]
  - GINGIVAL INFECTION [None]
  - HAEMATURIA [None]
  - HAEMORRHOIDS [None]
  - HEADACHE [None]
  - HYPERBARIC OXYGEN THERAPY [None]
  - HYPOAESTHESIA ORAL [None]
  - IMPAIRED HEALING [None]
  - INFLAMMATION [None]
  - INJURY [None]
  - JAW DISORDER [None]
  - LOCAL SWELLING [None]
  - LOOSE TOOTH [None]
  - LYMPHADENOPATHY [None]
  - LYMPHOEDEMA [None]
  - MACROGLOSSIA [None]
  - MALAISE [None]
  - MASS [None]
  - METASTASES TO CENTRAL NERVOUS SYSTEM [None]
  - MOUTH HAEMORRHAGE [None]
  - MUCOSAL EROSION [None]
  - NASAL MUCOSAL DISORDER [None]
  - NEUROPATHY PERIPHERAL [None]
  - NIGHT SWEATS [None]
  - NODULE [None]
  - OEDEMA PERIPHERAL [None]
  - ORAL DISCOMFORT [None]
  - ORAL INFECTION [None]
  - OSTEOMYELITIS CHRONIC [None]
  - OSTEONECROSIS [None]
  - PAIN [None]
  - PAIN IN JAW [None]
  - PALLOR [None]
  - PARAESTHESIA [None]
  - PETECHIAE [None]
  - PLEURAL EFFUSION [None]
  - PROSTHESIS IMPLANTATION [None]
  - RECTAL HAEMORRHAGE [None]
  - RENAL CANCER [None]
  - RENAL FAILURE [None]
  - RETCHING [None]
  - SEQUESTRECTOMY [None]
  - SINUS DISORDER [None]
  - TONGUE PARALYSIS [None]
  - TOOTH DISORDER [None]
  - TOOTH EXTRACTION [None]
  - TOOTH RESORPTION [None]
  - TRANSFUSION [None]
  - URINARY TRACT INFECTION [None]
  - WOUND DEHISCENCE [None]
